FAERS Safety Report 14752198 (Version 1)
Quarter: 2018Q2

REPORT INFORMATION
  Report Type: Spontaneous
  Country: FR (occurrence: FR)
  Receive Date: 20180412
  Receipt Date: 20180412
  Transmission Date: 20180711
  Serious: Yes (Other)
  Sender: FDA-Public Use
  Company Number: FR-CLINIGEN GROUP PLC/ CLINIGEN HEALTHCARE LTD-FR-CLGN-18-00163

PATIENT
  Age: 5 Decade
  Sex: Female

DRUGS (2)
  1. FOSCARNET SODIUM. [Suspect]
     Active Substance: FOSCARNET SODIUM
     Indication: VIRAL KERATOUVEITIS
  2. FOSCARNET SODIUM. [Suspect]
     Active Substance: FOSCARNET SODIUM
     Indication: HERPES OPHTHALMIC
     Route: 042
     Dates: start: 199608

REACTIONS (6)
  - Nephrocalcinosis [Unknown]
  - Haemodialysis [Recovered/Resolved]
  - Polyneuropathy [Recovering/Resolving]
  - Endocarditis [Recovered/Resolved]
  - Off label use [Unknown]
  - Renal failure [Recovering/Resolving]

NARRATIVE: CASE EVENT DATE: 199701
